FAERS Safety Report 18041750 (Version 1)
Quarter: 2020Q3

REPORT INFORMATION
  Report Type: Spontaneous
  Country: US (occurrence: US)
  Receive Date: 20200720
  Receipt Date: 20200720
  Transmission Date: 20201103
  Serious: No
  Sender: FDA-Public Use
  Company Number: US-TEVA-2020-US-1803209

PATIENT
  Age: 47 Year
  Sex: Female

DRUGS (1)
  1. CAMRESE [Suspect]
     Active Substance: ETHINYL ESTRADIOL\LEVONORGESTREL
     Indication: MENSTRUAL DISORDER
     Dosage: FORM STRENGTH: 0.15 MG / 0.03 MG / 0.01 MG, START DATE: SINCE 5 YEARS
     Route: 065

REACTIONS (3)
  - Vaginal haemorrhage [Unknown]
  - Drug ineffective [Unknown]
  - Product quality issue [Unknown]

NARRATIVE: CASE EVENT DATE: 202007
